FAERS Safety Report 9671394 (Version 1)
Quarter: 2013Q4

REPORT INFORMATION
  Report Type: Spontaneous
  Country: US (occurrence: None)
  Receive Date: 20131106
  Receipt Date: 20131106
  Transmission Date: 20140711
  Serious: Yes (Death)
  Sender: FDA-Public Use
  Company Number: None

PATIENT
  Sex: 0

DRUGS (1)
  1. DUAL TESTOSTERONE [Suspect]
     Dates: start: 20130423

REACTIONS (2)
  - Product quality issue [None]
  - Poor quality drug administered [None]
